FAERS Safety Report 21081189 (Version 6)
Quarter: 2023Q1

REPORT INFORMATION
  Report Type: Report from Study
  Country: US (occurrence: US)
  Receive Date: 20220714
  Receipt Date: 20230307
  Transmission Date: 20230418
  Serious: Yes (Other)
  Sender: FDA-Public Use
  Company Number: US-ABBVIE-22K-163-4431698-00

PATIENT
  Age: 26 Year
  Sex: Male

DRUGS (4)
  1. HUMIRA [Suspect]
     Active Substance: ADALIMUMAB
     Indication: Hidradenitis
     Dosage: CITRATE FREE
     Route: 058
  2. HUMIRA [Suspect]
     Active Substance: ADALIMUMAB
     Dosage: CITRATE FREE
     Route: 058
  3. HUMIRA [Suspect]
     Active Substance: ADALIMUMAB
     Dosage: CITRATE FREE
     Route: 058
  4. HUMIRA [Suspect]
     Active Substance: ADALIMUMAB
     Dosage: CITRATE FREE
     Route: 058

REACTIONS (16)
  - Seizure [Recovering/Resolving]
  - Furuncle [Recovering/Resolving]
  - Somnolence [Not Recovered/Not Resolved]
  - Hypersomnia [Not Recovered/Not Resolved]
  - Bruxism [Not Recovered/Not Resolved]
  - Skin haemorrhage [Recovering/Resolving]
  - Drooling [Not Recovered/Not Resolved]
  - Agitation [Not Recovered/Not Resolved]
  - Ear infection staphylococcal [Unknown]
  - Tympanic membrane perforation [Unknown]
  - Fatigue [Not Recovered/Not Resolved]
  - Otorrhoea [Not Recovered/Not Resolved]
  - Urinary tract infection [Unknown]
  - Intentional self-injury [Not Recovered/Not Resolved]
  - Wound haemorrhage [Unknown]
  - Platelet count decreased [Unknown]

NARRATIVE: CASE EVENT DATE: 20220101
